FAERS Safety Report 8011651-X (Version None)
Quarter: 2011Q4

REPORT INFORMATION
  Report Type: 
  Country: None (occurrence: None)
  Receive Date: 20111228
  Receipt Date: 20111219
  Transmission Date: 20120403
  Serious: Yes (Hospitalization, Other)
  Sender: FDA-Public Use
  Company Number: US-ELI_LILLY_AND_COMPANY-US201109005924

PATIENT
  Age: 42 Year
  Sex: Female
  Weight: 96 kg

DRUGS (22)
  1. HUMATROPE [Suspect]
     Indication: GROWTH HORMONE DEFICIENCY
     Dosage: 0.2 MG, QD
     Dates: start: 20091101
  2. VITAMIN B COMPLEX CAP [Concomitant]
  3. MURO 128 [Concomitant]
  4. ALBUTEROL [Concomitant]
  5. M.V.I. [Concomitant]
  6. COLACE [Concomitant]
  7. METFORMIN HCL [Concomitant]
  8. FISH OIL [Concomitant]
  9. INTAL [Concomitant]
  10. VITAMIN D [Concomitant]
  11. METOPROLOL SUCCINATE [Concomitant]
  12. KETOCONAZOLE [Concomitant]
  13. RESTASIS [Concomitant]
  14. DICLOFENAC SODIUM [Concomitant]
  15. CALCIUM ACETATE [Concomitant]
  16. GABAPENTIN [Concomitant]
  17. ATROVENT [Concomitant]
  18. SYSTANE                            /00678601/ [Concomitant]
  19. FOLIC ACID [Concomitant]
  20. SYNTHROID [Concomitant]
  21. NIZORAL [Concomitant]
  22. MAG-OX [Concomitant]

REACTIONS (9)
  - ANAL FISSURE [None]
  - KERATECTOMY [None]
  - GASTROINTESTINAL MOTILITY DISORDER [None]
  - RECTOCELE [None]
  - MENISCUS LESION [None]
  - ARTHRITIS [None]
  - ADRENAL DISORDER [None]
  - CUSHING'S SYNDROME [None]
  - RECTAL TENESMUS [None]
